FAERS Safety Report 5521228-3 (Version None)
Quarter: 2007Q4

REPORT INFORMATION
  Report Type: 
  Country: None (occurrence: None)
  Receive Date: 20071119
  Receipt Date: 20071113
  Transmission Date: 20080405
  Serious: Yes (Hospitalization)
  Sender: FDA-Public Use
  Company Number: US-ASTRAZENECA-2007UW26273

PATIENT
  Age: 37 Year
  Sex: Female
  Weight: 59 kg

DRUGS (8)
  1. CRESTOR [Suspect]
     Indication: HYPERCHOLESTEROLAEMIA
     Route: 048
     Dates: start: 20050101
  2. INSULIN [Concomitant]
  3. NOVALOX [Concomitant]
  4. PLAVIX [Concomitant]
  5. COREG [Concomitant]
  6. NEXIUM [Concomitant]
  7. PREDNISOLONE [Concomitant]
  8. PROGRAF [Concomitant]

REACTIONS (5)
  - BLOOD DISORDER [None]
  - IMMUNE SYSTEM DISORDER [None]
  - MYOCARDIAL INFARCTION [None]
  - RENAL TRANSPLANT [None]
  - STAPHYLOCOCCAL INFECTION [None]
